FAERS Safety Report 21232737 (Version 3)
Quarter: 2024Q3

REPORT INFORMATION
  Report Type: Spontaneous
  Country: US (occurrence: US)
  Receive Date: 20220819
  Receipt Date: 20240917
  Transmission Date: 20241016
  Serious: Yes (Hospitalization)
  Sender: SAREPTA THERAPEUTICS
  Company Number: US-SAREPTA THERAPEUTICS INC.-SRP2022-002458

PATIENT
  Sex: Male

DRUGS (2)
  1. AMONDYS 45 [Suspect]
     Active Substance: CASIMERSEN
     Indication: Duchenne muscular dystrophy
     Dosage: 220 MILLIGRAM, WEEKLY
     Route: 042
     Dates: start: 20220518, end: 20220726
  2. AMONDYS 45 [Suspect]
     Active Substance: CASIMERSEN
     Dosage: 220 MILLIGRAM WEEKLY
     Route: 042
     Dates: start: 20220809

REACTIONS (5)
  - Infusion site infection [Not Recovered/Not Resolved]
  - Bronchiolitis [Unknown]
  - Bronchiolitis [Unknown]
  - Upper respiratory tract infection [Not Recovered/Not Resolved]
  - Otitis media acute [Recovering/Resolving]

NARRATIVE: CASE EVENT DATE: 20220101
